FAERS Safety Report 6495766-3 (Version None)
Quarter: 2009Q4

REPORT INFORMATION
  Report Type: 
  Country: None (occurrence: None)
  Receive Date: 20091214
  Receipt Date: 20090929
  Transmission Date: 20100525
  Serious: No
  Sender: FDA-Public Use
  Company Number: US-BRISTOL-MYERS SQUIBB COMPANY-14736870

PATIENT
  Age: 72 Year
  Sex: Male

DRUGS (2)
  1. ABILIFY [Suspect]
     Indication: DELUSION
     Dosage: DOSE REDUCED TO 2.5 MG DAILY
     Route: 048
     Dates: start: 20090325
  2. CELEXA [Suspect]

REACTIONS (2)
  - MIDDLE EAR EFFUSION [None]
  - WEIGHT INCREASED [None]
